FAERS Safety Report 5263248-2 (Version None)
Quarter: 2007Q1

REPORT INFORMATION
  Report Type: 
  Country: None (occurrence: None)
  Receive Date: 20061219
  Receipt Date: 20061111
  Transmission Date: 20070707
  Serious: No
  Sender: FDA-Public Use
  Company Number: 2006US002105

PATIENT
  Age: 42 Year
  Sex: Female

DRUGS (5)
  1. VESICARE [Suspect]
     Indication: URETHRAL PAIN
     Dosage: 5 MG, UID/QD, ORAL
     Route: 048
     Dates: start: 20060826, end: 20060909
  2. VESICARE [Suspect]
  3. MOTRIN [Concomitant]
  4. TYLENOL (DEXTROMETHORPHAN HYDROBROMIDE, PSEUDOEPHEDRINE HYDROCHLORIDE, [Concomitant]
  5. TUMS (MAGNESIUM TRISILICATE, MAGNESIUM CARBONATE) [Concomitant]

REACTIONS (9)
  - ABDOMINAL DISTENSION [None]
  - CONSTIPATION [None]
  - DIARRHOEA [None]
  - DIZZINESS [None]
  - DRY MOUTH [None]
  - FATIGUE [None]
  - FLATULENCE [None]
  - NAUSEA [None]
  - VISION BLURRED [None]
